FAERS Safety Report 5954281-3 (Version None)
Quarter: 2008Q4

REPORT INFORMATION
  Report Type: 
  Country: None (occurrence: None)
  Receive Date: 20081113
  Receipt Date: 20081113
  Transmission Date: 20090506
  Serious: Yes (Death)
  Sender: FDA-Public Use
  Company Number: None

PATIENT
  Age: 71 Year
  Sex: Female
  Weight: 61.2356 kg

DRUGS (4)
  1. MORPHINE SULFATE [Suspect]
     Indication: BACK PAIN
     Dosage: ONE TABLET EVERY 8 HOURS PO
     Route: 048
     Dates: start: 20050301, end: 20061031
  2. MORPHINE SULFATE [Suspect]
     Indication: SYSTEMIC LUPUS ERYTHEMATOSUS
     Dosage: ONE TABLET EVERY 8 HOURS PO
     Route: 048
     Dates: start: 20050301, end: 20061031
  3. MORPHINE SULFATE [Suspect]
     Indication: BACK PAIN
     Dosage: ONE TABLET EVERY 8 HOURS PO
     Route: 048
     Dates: start: 20080815, end: 20081102
  4. MORPHINE SULFATE [Suspect]
     Indication: SYSTEMIC LUPUS ERYTHEMATOSUS
     Dosage: ONE TABLET EVERY 8 HOURS PO
     Route: 048
     Dates: start: 20080815, end: 20081102

REACTIONS (4)
  - ABDOMINAL PAIN UPPER [None]
  - LETHARGY [None]
  - RESPIRATORY ARREST [None]
  - RESPIRATORY DISTRESS [None]
